FAERS Safety Report 9752748 (Version 1)
Quarter: 2013Q4

REPORT INFORMATION
  Report Type: Spontaneous
  Country: US (occurrence: None)
  Receive Date: 20131211
  Receipt Date: 20131211
  Transmission Date: 20140711
  Serious: No
  Sender: FDA-Public Use
  Company Number: US-ALKEM-000428

PATIENT
  Age: 13 Year
  Sex: Male

DRUGS (1)
  1. QUETIAPINE (QUETIAPINE) [Suspect]
     Indication: AFFECTIVE DISORDER

REACTIONS (14)
  - Dyskinesia [None]
  - Myoclonus [None]
  - Akathisia [None]
  - Drug abuse [None]
  - Mydriasis [None]
  - Excessive eye blinking [None]
  - Lip disorder [None]
  - Incorrect route of drug administration [None]
  - Wrong technique in drug usage process [None]
  - Treatment noncompliance [None]
  - Tachycardia [None]
  - Blepharospasm [None]
  - Restlessness [None]
  - Toxicity to various agents [None]
